FAERS Safety Report 7721592-0 (Version None)
Quarter: 2011Q3

REPORT INFORMATION
  Report Type: 
  Country: None (occurrence: None)
  Receive Date: 20110831
  Receipt Date: 20110826
  Transmission Date: 20111222
  Serious: Yes (Hospitalization)
  Sender: FDA-Public Use
  Company Number: SG-GLAXOSMITHKLINE-B0741507A

PATIENT
  Sex: Female
  Weight: 52.9 kg

DRUGS (4)
  1. ARZERRA [Suspect]
     Indication: B-CELL LYMPHOMA
     Route: 042
     Dates: start: 20110810
  2. IFOSFAMIDE [Suspect]
     Route: 042
     Dates: start: 20110811, end: 20110812
  3. ETOPOSIDE [Suspect]
     Route: 042
     Dates: start: 20110810, end: 20110812
  4. CARBOPLATIN [Suspect]
     Route: 042
     Dates: start: 20110811, end: 20110811

REACTIONS (2)
  - NAUSEA [None]
  - VOMITING [None]
